FAERS Safety Report 4687462-X (Version None)
Quarter: 2005Q2

REPORT INFORMATION
  Report Type: 
  Country: None (occurrence: None)
  Receive Date: 20050609
  Receipt Date: 20050609
  Transmission Date: 20051028
  Serious: No
  Sender: FDA-Public Use
  Company Number: None

PATIENT
  Age: 71 Year
  Sex: Male
  Weight: 72.5755 kg

DRUGS (1)
  1. ASPIRIN [Suspect]

REACTIONS (3)
  - GASTROINTESTINAL HAEMORRHAGE [None]
  - HYPOTENSION [None]
  - SYNCOPE [None]
